FAERS Safety Report 4959251-X (Version None)
Quarter: 2006Q1

REPORT INFORMATION
  Report Type: 
  Country: None (occurrence: None)
  Receive Date: 20060127
  Receipt Date: 20050906
  Transmission Date: 20060701
  Serious: Yes (Hospitalization, Other)
  Sender: FDA-Public Use
  Company Number: 2005-US-00063

PATIENT
  Age: 41 Year
  Sex: Female

DRUGS (3)
  1. CLOZAPINE [Suspect]
     Indication: SCHIZOAFFECTIVE DISORDER
     Dosage: 200 MG, QD, ORAL
     Route: 048
     Dates: start: 20050805, end: 20050901
  2. VALPROATE SODIUM [Concomitant]
  3. HALOPERIDOL DECANOATE [Concomitant]

REACTIONS (1)
  - MYOCARDITIS [None]
